FAERS Safety Report 5823859-X (Version None)
Quarter: 2008Q3

REPORT INFORMATION
  Report Type: 
  Country: None (occurrence: None)
  Receive Date: 20080725
  Receipt Date: 20080715
  Transmission Date: 20090109
  Serious: Yes (Other)
  Sender: FDA-Public Use
  Company Number: US-PFIZER INC-2008060745

PATIENT
  Sex: Female
  Weight: 96.2 kg

DRUGS (11)
  1. LYRICA [Suspect]
     Indication: FIBROMYALGIA
     Route: 048
     Dates: start: 20061001, end: 20080630
  2. FENTANYL [Concomitant]
  3. IMURAN [Concomitant]
  4. SOMA [Concomitant]
  5. PLAQUENIL [Concomitant]
  6. MONTELUKAST SODIUM [Concomitant]
  7. DIPHENHYDRAMINE TANNATE [Concomitant]
  8. ALL OTHER THERAPEUTIC PRODUCTS [Concomitant]
  9. LUNESTA [Concomitant]
  10. REQUIP [Concomitant]
     Indication: RESTLESS LEGS SYNDROME
  11. ZYRTEC [Concomitant]

REACTIONS (3)
  - CONVULSION [None]
  - PAIN [None]
  - PLATELET COUNT INCREASED [None]
